FAERS Safety Report 19653082 (Version 5)
Quarter: 2022Q1

REPORT INFORMATION
  Report Type: Spontaneous
  Country: US (occurrence: US)
  Receive Date: 20210803
  Receipt Date: 20220324
  Transmission Date: 20220423
  Serious: Yes (Other)
  Sender: FDA-Public Use
  Company Number: US-PFIZER INC-202100924344

PATIENT
  Age: 70 Year
  Sex: Female

DRUGS (2)
  1. TIKOSYN [Suspect]
     Active Substance: DOFETILIDE
     Dosage: 1 DF, 2X/DAY
     Route: 048
  2. TIKOSYN [Suspect]
     Active Substance: DOFETILIDE
     Dosage: 125 UG

REACTIONS (4)
  - Diabetes mellitus [Unknown]
  - Cerebrovascular accident [Unknown]
  - Dysphonia [Unknown]
  - Electrocardiogram abnormal [Unknown]
